FAERS Safety Report 6146601-4 (Version None)
Quarter: 2009Q2

REPORT INFORMATION
  Report Type: 
  Country: None (occurrence: None)
  Receive Date: 20090407
  Receipt Date: 20090331
  Transmission Date: 20091009
  Serious: Yes (Other)
  Sender: FDA-Public Use
  Company Number: US-AMGEN-KDL339638

PATIENT
  Sex: Female

DRUGS (4)
  1. ENBREL [Suspect]
     Indication: PSORIASIS
     Route: 058
     Dates: start: 20050306
  2. ENBREL [Suspect]
     Indication: PSORIATIC ARTHROPATHY
  3. ZYRTEC [Concomitant]
  4. DOVONEX [Concomitant]

REACTIONS (4)
  - CATARACT [None]
  - CONSTIPATION [None]
  - PSORIASIS [None]
  - SKIN PAPILLOMA [None]
